FAERS Safety Report 4835544-1 (Version None)
Quarter: 2005Q4

REPORT INFORMATION
  Report Type: 
  Country: None (occurrence: None)
  Receive Date: 20051121
  Receipt Date: 20051108
  Transmission Date: 20060501
  Serious: Yes (Hospitalization)
  Sender: FDA-Public Use
  Company Number: 2005154150

PATIENT
  Age: 74 Year
  Sex: Female
  Weight: 60.782 kg

DRUGS (6)
  1. DETROL LA [Suspect]
     Indication: INCONTINENCE
     Dosage: 4 MG (4 MG, 1 IN 1 D), ORAL
     Route: 048
     Dates: start: 20050401, end: 20050901
  2. SYNTHROID [Concomitant]
  3. PROCARDIA [Concomitant]
  4. ACTONEL [Concomitant]
  5. VITAMINS (VITAMINS) [Concomitant]
  6. CALCIUM (CALCIUM) [Concomitant]

REACTIONS (5)
  - ARTHROPATHY [None]
  - HIP ARTHROPLASTY [None]
  - NOCTURIA [None]
  - POST PROCEDURAL COMPLICATION [None]
  - WEIGHT DECREASED [None]
